FAERS Safety Report 10237763 (Version 3)
Quarter: 2015Q2

REPORT INFORMATION
  Report Type: Spontaneous
  Country: FR (occurrence: FR)
  Receive Date: 20140616
  Receipt Date: 20150519
  Transmission Date: 20150821
  Serious: Yes (Congenital Anomaly, Other)
  Sender: FDA-Public Use
  Company Number: FR-AMGEN-FRASP2014044178

PATIENT
  Age: 4 Day
  Sex: Male
  Weight: 4.3 kg

DRUGS (53)
  1. NEUPOGEN [Suspect]
     Active Substance: FILGRASTIM
     Dosage: 45 MUG, UNK
     Route: 064
     Dates: start: 20130814, end: 20130822
  2. CORTANCYL [Concomitant]
     Active Substance: PREDNISONE
     Dosage: 10 MG, UNK
     Route: 064
     Dates: start: 20131022, end: 20131023
  3. FAT EMULSION NOS [Concomitant]
     Active Substance: EGG PHOSPHOLIPIDS\SAFFLOWER OIL\SOYBEAN OIL
     Dosage: 20 %, Q2WK
     Route: 064
     Dates: start: 20130725
  4. DUPHASTON [Concomitant]
     Active Substance: DYDROGESTERONE
     Dosage: 10 MG, 2-0-2 VAGINALLY
     Route: 064
     Dates: start: 20130726, end: 20130809
  5. UTROGESTAN [Concomitant]
     Active Substance: PROGESTERONE
     Dosage: 200 MG, QID
     Route: 064
     Dates: start: 20130731, end: 20130910
  6. CRINONE [Concomitant]
     Active Substance: PROGESTERONE
     Dosage: 8 %, BID
     Route: 064
     Dates: start: 20130810, end: 20130813
  7. ORAVIR [Concomitant]
     Indication: PRODUCT USED FOR UNKNOWN INDICATION
     Dosage: 125 MG, 2/DAY
     Route: 064
     Dates: start: 20140215, end: 20140219
  8. DAFALGAN [Concomitant]
     Active Substance: ACETAMINOPHEN
     Indication: PRODUCT USED FOR UNKNOWN INDICATION
     Dosage: 1 G, 1/DAY
     Route: 064
     Dates: start: 20140214
  9. NEUPOGEN [Suspect]
     Active Substance: FILGRASTIM
     Dosage: 60 MUG, UNK
     Route: 064
     Dates: start: 20130905, end: 20130916
  10. MAGNESIUM MALATE [Concomitant]
     Dosage: 72 MG, UNK
     Route: 064
     Dates: start: 2012
  11. PENTOXIFYLLINE. [Concomitant]
     Active Substance: PENTOXIFYLLINE
     Dosage: 400 MG, UNK
     Route: 064
     Dates: start: 2011, end: 20130812
  12. TOCOPHEROL TEVA [Concomitant]
     Dosage: 500 MG, UNK
     Route: 064
     Dates: start: 2011, end: 20130813
  13. PIO                                /01460202/ [Concomitant]
     Dosage: 50 MG, UNK
     Route: 064
     Dates: start: 20131013, end: 20131016
  14. COTRIMOXAZOLE [Concomitant]
     Active Substance: SULFAMETHOXAZOLE\TRIMETHOPRIM
     Dosage: 10 UNK (800/160X2), DAILY
     Route: 064
     Dates: start: 20140411, end: 20140417
  15. NEUPOGEN [Suspect]
     Active Substance: FILGRASTIM
     Dosage: 75 MUG, UNK
     Route: 064
     Dates: start: 20130823, end: 20130904
  16. IRON [Concomitant]
     Active Substance: IRON
     Dosage: 18 MG, UNK
     Route: 064
     Dates: start: 2011
  17. CORTANCYL [Concomitant]
     Active Substance: PREDNISONE
     Dosage: 15 MG, UNK
     Route: 064
     Dates: start: 20131018, end: 20131021
  18. OROMONE [Concomitant]
     Active Substance: ESTRADIOL
     Dosage: 2 MG, 1-0-1 VAGINALLY
     Route: 064
     Dates: start: 20130727, end: 20131011
  19. NEUPOGEN [Suspect]
     Active Substance: FILGRASTIM
     Dosage: 60 MUG, UNK
     Route: 064
     Dates: start: 20130728, end: 20130813
  20. CALCIUM CITRATE MALATE [Concomitant]
     Active Substance: CALCIUM CITRATE MALATE
     Dosage: 1000 MG, UNK
     Route: 064
     Dates: start: 2013
  21. EGCG [Concomitant]
     Dosage: 400 MG, UNK
     Route: 064
     Dates: start: 20130307, end: 20130726
  22. ZINC [Concomitant]
     Active Substance: ZINC\ZINC CHLORIDE
     Dosage: EVERY 2 DAYS
     Route: 048
     Dates: start: 20130505, end: 20130905
  23. ZYMAD [Concomitant]
     Active Substance: CHOLECALCIFEROL
     Dosage: 4 DROPS DAILY
     Route: 048
     Dates: start: 20140424
  24. NEUPOGEN [Suspect]
     Active Substance: FILGRASTIM
     Dosage: 45 MUG, UNK
     Route: 064
     Dates: start: 20130917, end: 20131004
  25. VITAMIN C [Concomitant]
     Active Substance: ASCORBIC ACID
     Dosage: 500 MG, UNK
     Route: 064
     Dates: start: 2012, end: 20130903
  26. CORTANCYL [Concomitant]
     Active Substance: PREDNISONE
     Dosage: 20 + 15 MG
     Route: 064
     Dates: start: 20130727, end: 20130913
  27. UVEDOSE [Concomitant]
     Active Substance: CHOLECALCIFEROL
     Dosage: 100000 IU, ONE TIME DOSE
     Route: 064
     Dates: start: 20130721, end: 20130721
  28. UTROGESTAN [Concomitant]
     Active Substance: PROGESTERONE
     Dosage: 200 MG, BID (TAPER SLOWLY FROM OCTOBER?)
     Route: 064
     Dates: start: 20130911, end: 20131001
  29. CRINONE [Concomitant]
     Active Substance: PROGESTERONE
     Dosage: 8 UNK, TID
     Route: 064
     Dates: start: 20130814, end: 20130821
  30. ORAVIR [Concomitant]
     Dosage: 250 MG, BID
     Route: 064
     Dates: start: 20140223, end: 20140228
  31. DAFALGAN [Concomitant]
     Active Substance: ACETAMINOPHEN
     Dosage: 1 G, 1/DAY
     Route: 064
     Dates: start: 20140222
  32. FOLIC ACID. [Concomitant]
     Active Substance: FOLIC ACID
     Dosage: 800 MCG, UNK
     Route: 064
     Dates: start: 2011
  33. FLAXSEED [Concomitant]
     Active Substance: FLAX SEED
     Dosage: 1000 MG, UNK
     Route: 064
     Dates: start: 2012
  34. THAIS SEPT [Concomitant]
     Dosage: 2 PATCHES, CHANGING EVERY 3 DAYS
     Route: 064
     Dates: start: 20130713, end: 20131018
  35. OROMONE [Concomitant]
     Active Substance: ESTRADIOL
     Dosage: 2MG, 1-1-1 VAGINALLY
     Route: 064
     Dates: start: 20130716, end: 20130726
  36. CRINONE [Concomitant]
     Active Substance: PROGESTERONE
     Dosage: 8 %, BID
     Route: 064
     Dates: start: 20130822
  37. NEUPOGEN [Suspect]
     Active Substance: FILGRASTIM
     Dosage: 30MU VIAL UTERINE WASH, ONE TIME DOSE
     Route: 064
     Dates: start: 20130724
  38. LOVENOX [Concomitant]
     Active Substance: ENOXAPARIN SODIUM
     Dosage: 40 IU, UNK
     Route: 064
     Dates: start: 20130712
  39. CORTANCYL [Concomitant]
     Active Substance: PREDNISONE
     Dosage: 25 MG, UNK
     Route: 064
     Dates: start: 20130713, end: 20130726
  40. CORTANCYL [Concomitant]
     Active Substance: PREDNISONE
     Dosage: 15 + 5 MG, UNK
     Route: 064
     Dates: start: 20131015, end: 20131017
  41. CORTANCYL [Concomitant]
     Active Substance: PREDNISONE
     Dosage: 5 MG, UNK
     Route: 064
     Dates: start: 20131024, end: 20131026
  42. PROGESTERONE RETARD PHARLON [Concomitant]
     Dosage: 150 MG, UNK
     Route: 064
     Dates: start: 20130726, end: 20130730
  43. CRINONE [Concomitant]
     Active Substance: PROGESTERONE
     Dosage: 8 %, QD
     Route: 064
     Dates: start: 20130917, end: 20130923
  44. PIO                                /01460202/ [Concomitant]
     Dosage: 150 MG, UNK
     Route: 064
     Dates: start: 20131009, end: 20131012
  45. VALACICLOVIR [Concomitant]
     Active Substance: VALACYCLOVIR HYDROCHLORIDE
     Indication: PRODUCT USED FOR UNKNOWN INDICATION
     Dosage: 500 UNK, DAILY
     Route: 064
     Dates: start: 20140328, end: 20140425
  46. NEUPOGEN [Suspect]
     Active Substance: FILGRASTIM
     Indication: PRODUCT USED FOR UNKNOWN INDICATION
     Dosage: 30MU VIAL UTERINE WASH, ONE TIME DOSE
     Route: 064
     Dates: start: 20130720, end: 20131003
  47. VITAMIN D3 [Concomitant]
     Active Substance: CHOLECALCIFEROL
     Dosage: 2000 IU, UNK
     Route: 064
     Dates: start: 2012
  48. LOVENOX [Concomitant]
     Active Substance: ENOXAPARIN SODIUM
     Dosage: 20 IU, UNK
     Route: 064
     Dates: start: 20130712
  49. CORTANCYL [Concomitant]
     Active Substance: PREDNISONE
     Dosage: 15 +10 MG (WILL TAPER AS PROGESTERONE TAPERS)
     Route: 064
     Dates: start: 20130914, end: 20131014
  50. PROGESTERONE RETARD PHARLON [Concomitant]
     Dosage: 200 MG, (TAPER SLOWLY FROM OCTOVER?)
     Route: 064
     Dates: start: 20130731, end: 20131008
  51. CRINONE [Concomitant]
     Active Substance: PROGESTERONE
     Dosage: 8 %, BID (TAPER SLOWLY FROM OCTOBER?)
     Route: 064
     Dates: start: 20130924, end: 20131018
  52. DAFALGAN [Concomitant]
     Active Substance: ACETAMINOPHEN
     Dosage: 1 G, 1/DAY
     Route: 064
     Dates: start: 20140225
  53. VITAMIN K1 [Concomitant]
     Active Substance: PHYTONADIONE
     Indication: BREAST FEEDING
     Dosage: 2 MG, WEEKLY
     Route: 048
     Dates: start: 20140425, end: 20140920

REACTIONS (13)
  - Tremor [Unknown]
  - Dacryocanaliculitis [Not Recovered/Not Resolved]
  - Nasopharyngitis [Unknown]
  - Neonatal aspiration [Unknown]
  - Ankyloglossia congenital [Unknown]
  - Vomiting [Unknown]
  - Umbilical cord around neck [Unknown]
  - Jaundice neonatal [Unknown]
  - Sinusitis [Unknown]
  - Ear infection [Unknown]
  - Lip disorder [Unknown]
  - Dacryostenosis acquired [Unknown]
  - Abnormal faeces [Unknown]

NARRATIVE: CASE EVENT DATE: 2014
